FAERS Safety Report 20661374 (Version 1)
Quarter: 2022Q2

REPORT INFORMATION
  Report Type: Spontaneous
  Country: BR (occurrence: None)
  Receive Date: 20220401
  Receipt Date: 20220401
  Transmission Date: 20220721
  Serious: Yes (Other)
  Sender: FDA-Public Use
  Company Number: BR-ROCHE-3059369

PATIENT
  Weight: 112 kg

DRUGS (1)
  1. MABTHERA [Suspect]
     Active Substance: RITUXIMAB
     Indication: Systemic lupus erythematosus
     Dosage: 1000 MG 60 ML/HOUR (1 CYCLE)
     Route: 041
     Dates: start: 20220202, end: 20220202

REACTIONS (5)
  - Oxygen saturation decreased [Unknown]
  - Syncope [Unknown]
  - Flushing [Unknown]
  - Dyspnoea [Unknown]
  - Off label use [Unknown]
